FAERS Safety Report 7228240-7 (Version None)
Quarter: 2011Q1

REPORT INFORMATION
  Report Type: 
  Country: None (occurrence: None)
  Receive Date: 20110114
  Receipt Date: 20110110
  Transmission Date: 20110831
  Serious: Yes (Other)
  Sender: FDA-Public Use
  Company Number: FR-PFIZER INC-2011005849

PATIENT
  Age: 78 Year
  Sex: Female

DRUGS (7)
  1. EFFEXOR XR [Suspect]
  2. LYRICA [Suspect]
     Dosage: 100 MG, 2X/DAY
     Route: 048
  3. EUPANTOL [Suspect]
  4. ACUPAN [Suspect]
     Dosage: UNK
     Route: 048
     Dates: start: 20100301
  5. XANAX [Suspect]
  6. DI-ANTALVIC [Suspect]
  7. ALDACTAZINE [Suspect]

REACTIONS (3)
  - CHOLESTASIS [None]
  - CONFUSIONAL STATE [None]
  - FALL [None]
